FAERS Safety Report 11309111 (Version 2)
Quarter: 2015Q3

REPORT INFORMATION
  Report Type: Spontaneous
  Country: BR (occurrence: BR)
  Receive Date: 20150724
  Receipt Date: 20150731
  Transmission Date: 20151125
  Serious: Yes (Other)
  Sender: FDA-Public Use
  Company Number: BR-DSJP-DSU-2015-123090

PATIENT

DRUGS (3)
  1. OLMETEC [Suspect]
     Active Substance: OLMESARTAN MEDOXOMIL
     Indication: HYPERTENSION
  2. VARVITO [Concomitant]
     Indication: VITAMIN SUPPLEMENTATION
     Dosage: 1 TABLET QD
     Route: 048
     Dates: start: 201412
  3. OLMETEC [Suspect]
     Active Substance: OLMESARTAN MEDOXOMIL
     Indication: BLOOD PRESSURE ABNORMAL
     Dosage: 20/12.5MG, QD
     Route: 048
     Dates: start: 2011, end: 20141211

REACTIONS (1)
  - Obesity surgery [Recovered/Resolved]

NARRATIVE: CASE EVENT DATE: 20141211
